FAERS Safety Report 14662763 (Version 1)
Quarter: 2018Q1

REPORT INFORMATION
  Report Type: Spontaneous
  Country: US (occurrence: US)
  Receive Date: 20180321
  Receipt Date: 20180321
  Transmission Date: 20180509
  Serious: Yes (Other)
  Sender: FDA-Public Use
  Company Number: US-ZYDUS-019293

PATIENT
  Age: 78 Year
  Sex: Female

DRUGS (1)
  1. SIMVASTATIN. [Suspect]
     Active Substance: SIMVASTATIN
     Indication: PRODUCT USED FOR UNKNOWN INDICATION
     Route: 065

REACTIONS (5)
  - Hepatic enzyme abnormal [Recovered/Resolved]
  - Acute hepatic failure [Recovered/Resolved]
  - Hepatitis B reactivation [Recovered/Resolved]
  - Autoimmune hepatitis [Recovered/Resolved]
  - Antinuclear antibody positive [Recovered/Resolved]
